FAERS Safety Report 7878517-7 (Version None)
Quarter: 2011Q4

REPORT INFORMATION
  Report Type: 
  Country: None (occurrence: None)
  Receive Date: 20111014
  Receipt Date: 20110330
  Transmission Date: 20120403
  Serious: Yes (Other)
  Sender: FDA-Public Use
  Company Number: 1000019668

PATIENT
  Age: 60 Year
  Sex: Male
  Weight: 104 kg

DRUGS (21)
  1. LEXAPRO [Suspect]
     Dosage: ORAL
     Route: 048
  2. VIBATIV [Suspect]
     Indication: CELLULITIS
     Dosage: 10 MG/KG TOTAL DAILY DOSE, INTRAVENOUS (NOT OTHERWISE SPECIFIED)
     Route: 042
     Dates: start: 20110218, end: 20110220
  3. METOPROLOL TARTRATE [Concomitant]
  4. FENTANYL [Concomitant]
  5. TRAZODONE HCL [Suspect]
     Dosage: ORAL
     Route: 048
  6. NOVOLIN R [Concomitant]
  7. CILOSTAZOL [Concomitant]
  8. LISINOPRIL [Concomitant]
  9. IMDUR [Concomitant]
  10. VITAMIN D (COLECALCIFEROL) [Concomitant]
  11. SITAGLIPTIN [Concomitant]
  12. LASIX [Concomitant]
  13. HYDROMORPHONE HCL [Concomitant]
  14. CALCIUM CITRATE [Concomitant]
  15. OMEPRAZOLE [Concomitant]
  16. REGLAN [Concomitant]
  17. ZOLPIDERM [Concomitant]
  18. LANTUS [Concomitant]
  19. OXYCODONE HCL [Concomitant]
  20. WARFARIN SODIUM [Concomitant]
  21. LIPITOR [Concomitant]

REACTIONS (1)
  - ELECTROCARDIOGRAM QT PROLONGED [None]
